FAERS Safety Report 9849057 (Version 1)
Quarter: 2014Q1

REPORT INFORMATION
  Report Type: Spontaneous
  Country: US (occurrence: None)
  Receive Date: 20140127
  Receipt Date: 20140127
  Transmission Date: 20141002
  Serious: Yes (Other)
  Sender: FDA-Public Use
  Company Number: None

PATIENT
  Age: 46 Year
  Sex: Female
  Weight: 72.58 kg

DRUGS (1)
  1. OXTELLAR XR [Suspect]
     Indication: MIGRAINE
     Dosage: TAKEN BY MOUTH
     Dates: start: 20131112, end: 20140102

REACTIONS (9)
  - Rash [None]
  - Urticaria [None]
  - Blister [None]
  - Erythema [None]
  - Oral mucosal blistering [None]
  - Pain [None]
  - Feeling hot [None]
  - Pruritus [None]
  - Scar [None]
